FAERS Safety Report 16121085 (Version 1)
Quarter: 2019Q1

REPORT INFORMATION
  Report Type: Spontaneous
  Country: US (occurrence: US)
  Receive Date: 20190221
  Receipt Date: 20190221
  Transmission Date: 20190418
  Serious: Yes (Death, Hospitalization)
  Sender: FDA-Public Use
  Company Number: None

PATIENT
  Age: 14 Year
  Sex: Female
  Weight: 59.85 kg

DRUGS (7)
  1. DEXAMETHASONE. [Suspect]
     Active Substance: DEXAMETHASONE
     Dates: end: 20190108
  2. ZINECARD [Suspect]
     Active Substance: DEXRAZOXANE HYDROCHLORIDE
     Dates: end: 20190110
  3. METHOTREXATE. [Suspect]
     Active Substance: METHOTREXATE
     Dates: end: 20181220
  4. GLEEVEC [Suspect]
     Active Substance: IMATINIB MESYLATE
     Dates: end: 20190112
  5. DOXORUBICIN HYDROCHLORIDE. [Suspect]
     Active Substance: DOXORUBICIN HYDROCHLORIDE
     Dates: end: 20190110
  6. ONCASPAR [Suspect]
     Active Substance: PEGASPARGASE
     Dates: end: 20181227
  7. VINCRISTINE SULFATE. [Suspect]
     Active Substance: VINCRISTINE SULFATE
     Dates: end: 20190110

REACTIONS (12)
  - Klebsiella infection [None]
  - Clostridium difficile infection [None]
  - Aspergillus infection [None]
  - Febrile neutropenia [None]
  - Continuous haemodiafiltration [None]
  - Hypotension [None]
  - Cardio-respiratory arrest [None]
  - Enterobacter infection [None]
  - Tachycardia [None]
  - Packed red blood cell transfusion [None]
  - Platelet transfusion [None]
  - Candida infection [None]

NARRATIVE: CASE EVENT DATE: 20190119
